FAERS Safety Report 6051566-X (Version None)
Quarter: 2009Q1

REPORT INFORMATION
  Report Type: 
  Country: None (occurrence: None)
  Receive Date: 20090126
  Receipt Date: 20090126
  Transmission Date: 20090719
  Serious: Yes (Other)
  Sender: FDA-Public Use
  Company Number: B0554529A

PATIENT
  Age: 71 Year
  Sex: Male

DRUGS (1)
  1. ESKAZOLE [Suspect]
     Indication: PULMONARY ECHINOCOCCIASIS
     Dosage: 100MG TWICE PER DAY
     Route: 048
     Dates: start: 20080601

REACTIONS (4)
  - ERYTHEMA MULTIFORME [None]
  - LEUKOPENIA [None]
  - NEUTROPENIA [None]
  - TOXIC SKIN ERUPTION [None]
